FAERS Safety Report 21534401 (Version 1)
Quarter: 2022Q4

REPORT INFORMATION
  Report Type: Spontaneous
  Country: IT (occurrence: IT)
  Receive Date: 20221101
  Receipt Date: 20221101
  Transmission Date: 20230113
  Serious: Yes (Hospitalization)
  Sender: FDA-Public Use
  Company Number: IT-SA-SAC20210811000629

PATIENT
  Age: 52 Year
  Sex: Female
  Weight: 64 kg

DRUGS (4)
  1. LETROZOLE [Suspect]
     Active Substance: LETROZOLE
     Indication: Breast cancer stage II
     Dosage: 2.5 MG, QD
     Route: 048
     Dates: start: 20210716, end: 20210807
  2. GOSERELIN [Suspect]
     Active Substance: GOSERELIN
     Indication: Breast cancer stage II
     Dosage: 3.6 MG, ONCE EVERY 28 DAYS
     Route: 058
     Dates: start: 20210716, end: 20210716
  3. PALBOCICLIB [Suspect]
     Active Substance: PALBOCICLIB
     Indication: Breast cancer stage II
     Dosage: 125 MG, QD
     Route: 048
     Dates: start: 20210716, end: 20210807
  4. ACETAMINOPHEN [Concomitant]
     Active Substance: ACETAMINOPHEN
     Dosage: UNK
     Route: 048
     Dates: start: 20210730

REACTIONS (1)
  - Device related infection [Recovered/Resolved with Sequelae]

NARRATIVE: CASE EVENT DATE: 20210807
